FAERS Safety Report 8948590 (Version 5)
Quarter: 2013Q2

REPORT INFORMATION
  Report Type: Spontaneous
  Country: CN (occurrence: CN)
  Receive Date: 20121206
  Receipt Date: 20130429
  Transmission Date: 20140414
  Serious: Yes (Hospitalization, Other)
  Sender: FDA-Public Use
  Company Number: PHHY2012CN111155

PATIENT
  Age: 54 Year
  Sex: Female

DRUGS (1)
  1. TEGRETOL [Suspect]
     Dosage: 200 MG (SHE ONLY TOOK 3 TABLETS)
     Route: 048

REACTIONS (11)
  - Drug eruption [Recovered/Resolved]
  - Oropharyngeal blistering [Recovered/Resolved]
  - Urticaria [Recovered/Resolved]
  - Erythema [Recovered/Resolved]
  - Cerebral arteriosclerosis [Unknown]
  - Cerebral artery occlusion [Unknown]
  - Migraine [Unknown]
  - Hypertension [Recovered/Resolved]
  - Vascular headache [Unknown]
  - Nausea [Unknown]
  - Vomiting [Unknown]
